FAERS Safety Report 9005870 (Version 1)
Quarter: 2013Q1

REPORT INFORMATION
  Report Type: Spontaneous
  Country: US (occurrence: US)
  Receive Date: 20130109
  Receipt Date: 20130109
  Transmission Date: 20140127
  Serious: No
  Sender: FDA-Public Use
  Company Number: US-009507513-1301USA001717

PATIENT
  Age: 38 Year
  Sex: Female

DRUGS (1)
  1. SAPHRIS [Suspect]
     Indication: AFFECTIVE DISORDER
     Dosage: 10 MG, QD
     Route: 060
     Dates: start: 2012

REACTIONS (1)
  - Chromaturia [Not Recovered/Not Resolved]
